FAERS Safety Report 20621571 (Version 1)
Quarter: 2022Q1

REPORT INFORMATION
  Report Type: Spontaneous
  Country: US (occurrence: US)
  Receive Date: 20220322
  Receipt Date: 20220322
  Transmission Date: 20220423
  Serious: No
  Sender: FDA-Public Use
  Company Number: US-ALLERGAN-2122031US

PATIENT
  Age: 88 Year
  Sex: Male

DRUGS (2)
  1. LUMIGAN [Suspect]
     Active Substance: BIMATOPROST
     Indication: Glaucoma
     Dosage: 1 DROP INTO EACH EYE BEFORE BED
     Route: 047
     Dates: start: 20210601
  2. TIMOLOL MALEATE [Concomitant]
     Active Substance: TIMOLOL MALEATE
     Indication: Glaucoma
     Dosage: 2 DROPS PER DAY PER EYE
     Route: 047

REACTIONS (4)
  - Musculoskeletal stiffness [Recovered/Resolved]
  - Neck pain [Recovered/Resolved]
  - Product dose omission issue [Unknown]
  - Expired product administered [Unknown]
